FAERS Safety Report 5046123-8 (Version None)
Quarter: 2006Q2

REPORT INFORMATION
  Report Type: 
  Country: None (occurrence: None)
  Receive Date: 20060629
  Receipt Date: 20060614
  Transmission Date: 20061013
  Serious: Yes (Hospitalization)
  Sender: FDA-Public Use
  Company Number: 2006BI007726

PATIENT
  Age: 40 Year
  Sex: Female
  Weight: 40.3701 kg

DRUGS (4)
  1. AVONEX [Suspect]
     Indication: MULTIPLE SCLEROSIS
     Dosage: 75. + 1.5 + 22.5 + 30 UG QW; IM
     Route: 030
     Dates: start: 20060320, end: 20060402
  2. AVONEX [Suspect]
     Indication: MULTIPLE SCLEROSIS
     Dosage: 75. + 1.5 + 22.5 + 30 UG QW; IM
     Route: 030
     Dates: start: 20060402, end: 20060416
  3. AVONEX [Suspect]
     Indication: MULTIPLE SCLEROSIS
     Dosage: 75. + 1.5 + 22.5 + 30 UG QW; IM
     Route: 030
     Dates: start: 20060416, end: 20060430
  4. AVONEX [Suspect]
     Indication: MULTIPLE SCLEROSIS
     Dosage: 75. + 1.5 + 22.5 + 30 UG QW; IM
     Route: 030
     Dates: start: 20060430, end: 20060511

REACTIONS (3)
  - CHRONIC OBSTRUCTIVE PULMONARY DISEASE [None]
  - CONDITION AGGRAVATED [None]
  - NASOPHARYNGITIS [None]
